FAERS Safety Report 8388532-5 (Version None)
Quarter: 2012Q2

REPORT INFORMATION
  Report Type: 
  Country: None (occurrence: None)
  Receive Date: 20120525
  Receipt Date: 20120521
  Transmission Date: 20120825
  Serious: Yes (Hospitalization)
  Sender: FDA-Public Use
  Company Number: JP-ABBOTT-12P-087-0929397-00

PATIENT
  Sex: Female
  Weight: 46.1 kg

DRUGS (5)
  1. ETHAMBUTOL HYDROCHLORIDE [Suspect]
     Indication: ATYPICAL MYCOBACTERIAL INFECTION
     Dates: start: 20110816, end: 20111223
  2. CLARITHROMYCIN [Suspect]
     Indication: ATYPICAL MYCOBACTERIAL INFECTION
     Dosage: 600MG SID
     Route: 048
     Dates: start: 20110816, end: 20111223
  3. INSULIN [Concomitant]
     Indication: TYPE 2 DIABETES MELLITUS
  4. RIFADIN [Suspect]
     Indication: ATYPICAL MYCOBACTERIAL INFECTION
     Dates: start: 20110816, end: 20111215
  5. LIPITOR [Suspect]
     Indication: HYPERLIPIDAEMIA
     Dates: start: 20101028

REACTIONS (1)
  - HYPERGLYCAEMIA [None]
